FAERS Safety Report 19418608 (Version 1)
Quarter: 2021Q2

REPORT INFORMATION
  Report Type: Spontaneous
  Country: US (occurrence: US)
  Receive Date: 20210615
  Receipt Date: 20210615
  Transmission Date: 20210717
  Serious: No
  Sender: FDA-Public Use
  Company Number: US-SA-2021SA187352

PATIENT
  Sex: Male

DRUGS (4)
  1. PIOGLITAZONE. [Suspect]
     Active Substance: PIOGLITAZONE
     Dosage: UNK
     Route: 065
  2. LANTUS [Suspect]
     Active Substance: INSULIN GLARGINE
     Dosage: 45 U TWICE DAILY
     Route: 065
  3. METFORMIN [Concomitant]
     Active Substance: METFORMIN HYDROCHLORIDE
  4. GLIMEPIRIDE. [Suspect]
     Active Substance: GLIMEPIRIDE
     Dosage: UNK
     Route: 065

REACTIONS (5)
  - Glycosylated haemoglobin abnormal [Unknown]
  - Weight decreased [Unknown]
  - Fatigue [Unknown]
  - Inappropriate schedule of product administration [Unknown]
  - Immune system disorder [Unknown]
